FAERS Safety Report 5341767-8 (Version None)
Quarter: 2007Q2

REPORT INFORMATION
  Report Type: 
  Country: None (occurrence: None)
  Receive Date: 20070530
  Receipt Date: 20070518
  Transmission Date: 20071010
  Serious: Yes (Other)
  Sender: FDA-Public Use
  Company Number: 2007AL002081

PATIENT
  Age: 30 Year
  Sex: Male

DRUGS (3)
  1. MIRTAZAPINE [Suspect]
     Dosage: 600 MG; X1; PO
     Route: 048
  2. PARACETAMOL [Concomitant]
  3. ALCOHOL [Concomitant]

REACTIONS (1)
  - SUPRAVENTRICULAR TACHYCARDIA [None]
